FAERS Safety Report 10703871 (Version 5)
Quarter: 2015Q2

REPORT INFORMATION
  Report Type: Report from Study
  Country: NL (occurrence: NL)
  Receive Date: 20150112
  Receipt Date: 20150416
  Transmission Date: 20150821
  Serious: Yes (Life-Threatening, Hospitalization)
  Sender: FDA-Public Use
  Company Number: PHHO2015NL000591

PATIENT
  Age: 74 Year
  Sex: Female
  Weight: 82 kg

DRUGS (6)
  1. NADROPARIN [Concomitant]
     Active Substance: NADROPARIN
     Indication: PULMONARY EMBOLISM
     Dosage: 15000 IU, QD
     Route: 058
     Dates: start: 2013, end: 20150102
  2. AEB071 [Suspect]
     Active Substance: SOTRASTAURIN
     Indication: B-CELL LYMPHOMA
     Dosage: 250 MG, BID
     Route: 048
     Dates: start: 20141112, end: 20150107
  3. AFINITOR [Suspect]
     Active Substance: EVEROLIMUS
     Indication: B-CELL LYMPHOMA
     Dosage: 2.5 MG, QD
     Route: 048
     Dates: start: 20141112, end: 20150107
  4. ALLOPURINOL. [Concomitant]
     Active Substance: ALLOPURINOL
     Indication: PROPHYLAXIS
     Dosage: 300 MG, QD
     Route: 065
     Dates: start: 20141031
  5. NADROPARIN [Concomitant]
     Active Substance: NADROPARIN
     Dosage: 19000 IU, QD
     Route: 058
     Dates: start: 20150102
  6. INSULIN [Concomitant]
     Active Substance: INSULIN NOS
     Indication: DIABETES MELLITUS
     Dosage: BID
     Route: 058

REACTIONS (2)
  - Sepsis [Recovering/Resolving]
  - Pulmonary embolism [Not Recovered/Not Resolved]

NARRATIVE: CASE EVENT DATE: 20150102
